FAERS Safety Report 14293214 (Version 1)
Quarter: 2017Q4

REPORT INFORMATION
  Report Type: Spontaneous
  Country: US (occurrence: US)
  Receive Date: 20171215
  Receipt Date: 20171215
  Transmission Date: 20180321
  Serious: Yes (Other)
  Sender: FDA-Public Use
  Company Number: US-LUNDBECK-DKLU2041189

PATIENT
  Age: 24 Year
  Sex: Male

DRUGS (2)
  1. ONFI [Suspect]
     Active Substance: CLOBAZAM
     Route: 065
     Dates: start: 20120914
  2. ONFI [Suspect]
     Active Substance: CLOBAZAM
     Indication: SEIZURE
     Route: 065
     Dates: start: 20120914

REACTIONS (2)
  - Drug withdrawal convulsions [Unknown]
  - Drug dose omission [Unknown]

NARRATIVE: CASE EVENT DATE: 20171209
